FAERS Safety Report 18992597 (Version 2)
Quarter: 2021Q2

REPORT INFORMATION
  Report Type: Spontaneous
  Country: JP (occurrence: JP)
  Receive Date: 20210310
  Receipt Date: 20210408
  Transmission Date: 20210717
  Serious: Yes (Other)
  Sender: FDA-Public Use
  Company Number: JP-009507513-2103JPN000470J

PATIENT
  Age: 61 Year
  Sex: Male
  Weight: 60 kg

DRUGS (12)
  1. PANVITAN [Concomitant]
     Active Substance: VITAMINS
     Dosage: UNK
     Route: 065
  2. CARBOPLATIN. [Concomitant]
     Active Substance: CARBOPLATIN
     Indication: LUNG ADENOCARCINOMA STAGE IV
     Dosage: 620 MILLIGRAM
     Route: 051
     Dates: start: 20200729
  3. TRANEXAMIC ACID. [Concomitant]
     Active Substance: TRANEXAMIC ACID
     Dosage: UNK
     Route: 048
  4. METOCLOPRAMIDE. [Concomitant]
     Active Substance: METOCLOPRAMIDE
     Indication: DECREASED APPETITE
     Dosage: UNK
     Route: 048
  5. KEYTRUDA [Suspect]
     Active Substance: PEMBROLIZUMAB
     Indication: LUNG ADENOCARCINOMA STAGE IV
     Dosage: 200 MG PER DOSE
     Route: 041
     Dates: start: 20200729
  6. EQUA [Concomitant]
     Active Substance: VILDAGLIPTIN
     Dosage: UNK
     Route: 048
  7. ZOLPIDEM TARTRATE OD [Concomitant]
     Active Substance: ZOLPIDEM TARTRATE
     Dosage: UNK
     Route: 048
  8. DOMPERIDONE [Concomitant]
     Active Substance: DOMPERIDONE
     Indication: DECREASED APPETITE
     Dosage: UNK
     Route: 048
  9. CARBAZOCHROME SULFONATE NA [Concomitant]
     Dosage: UNK
     Route: 048
  10. CARBOCISTEINE [Concomitant]
     Active Substance: CARBOCYSTEINE
     Dosage: UNK
     Route: 048
  11. REBAMIPIDE [Concomitant]
     Active Substance: REBAMIPIDE
     Dosage: UNK
     Route: 048
  12. PEMETREXED DISODIUM [Concomitant]
     Active Substance: PEMETREXED DISODIUM
     Indication: LUNG ADENOCARCINOMA STAGE IV
     Dosage: 820 MILLIGRAM
     Route: 051
     Dates: start: 20200729

REACTIONS (1)
  - Haemoptysis [Recovering/Resolving]

NARRATIVE: CASE EVENT DATE: 20200802
